FAERS Safety Report 17995193 (Version 1)
Quarter: 2020Q3

REPORT INFORMATION
  Report Type: Report from Study
  Country: IT (occurrence: IT)
  Receive Date: 20200708
  Receipt Date: 20200708
  Transmission Date: 20201103
  Serious: Yes (Life-Threatening)
  Sender: FDA-Public Use
  Company Number: IT-PFIZER INC-2020247522

PATIENT
  Age: 66 Year
  Sex: Male

DRUGS (5)
  1. ANAFRANIL [Suspect]
     Active Substance: CLOMIPRAMINE HYDROCHLORIDE
     Indication: BIPOLAR DISORDER
     Dosage: 6000 MG(80 DF, 75MG ONE TABLET)
     Route: 048
     Dates: start: 20191202, end: 20191202
  2. ABACAVIR E LAMIVUDINA MYLAN [Concomitant]
     Dosage: UNK
     Route: 048
  3. OLANZAPINE TEVA [Concomitant]
     Active Substance: OLANZAPINE
     Dosage: 10 MG
     Route: 048
  4. ZOLOFT [Suspect]
     Active Substance: SERTRALINE HYDROCHLORIDE
     Indication: DEPRESSION
     Dosage: 3000 MG(60DF,50MG/TABLET)
     Route: 048
     Dates: start: 20191202, end: 20191202
  5. NEVIRAPINA TEVA ITALIA [Concomitant]
     Dosage: 400 MG
     Route: 048

REACTIONS (3)
  - Toxicity to various agents [Recovered/Resolved]
  - Intentional overdose [Unknown]
  - Intentional self-injury [Recovered/Resolved]

NARRATIVE: CASE EVENT DATE: 20191202
